FAERS Safety Report 8227498-5 (Version None)
Quarter: 2012Q1

REPORT INFORMATION
  Report Type: 
  Country: None (occurrence: None)
  Receive Date: 20120322
  Receipt Date: 20120317
  Transmission Date: 20120608
  Serious: Yes (Hospitalization, Other)
  Sender: FDA-Public Use
  Company Number: PHHY2012AR024276

PATIENT
  Age: 76 Year
  Sex: Female

DRUGS (1)
  1. PARLODEL [Suspect]

REACTIONS (3)
  - PULMONARY FIBROSIS [None]
  - DYSPNOEA [None]
  - TOXICITY TO VARIOUS AGENTS [None]
